FAERS Safety Report 6283660-2 (Version None)
Quarter: 2009Q3

REPORT INFORMATION
  Report Type: 
  Country: None (occurrence: None)
  Receive Date: 20090724
  Receipt Date: 20090717
  Transmission Date: 20100115
  Serious: Yes (Hospitalization)
  Sender: FDA-Public Use
  Company Number: JP-BAXTER-2009BH011423

PATIENT
  Age: 53 Year
  Sex: Female

DRUGS (9)
  1. HOLOXAN BAXTER [Suspect]
     Indication: UTERINE CANCER
     Route: 041
     Dates: start: 20090204, end: 20090210
  2. HOLOXAN BAXTER [Suspect]
     Route: 041
     Dates: start: 20090311, end: 20090317
  3. HOLOXAN BAXTER [Suspect]
     Route: 041
     Dates: start: 20090420, end: 20090426
  4. RANDA [Suspect]
     Indication: UTERINE CANCER
     Route: 041
     Dates: start: 20090204, end: 20090210
  5. RANDA [Suspect]
     Route: 041
     Dates: start: 20090311, end: 20090317
  6. RANDA [Suspect]
     Route: 041
     Dates: start: 20090420, end: 20090426
  7. FARMORUBICIN [Suspect]
     Indication: UTERINE CANCER
     Route: 041
     Dates: start: 20090204, end: 20090210
  8. FARMORUBICIN [Suspect]
     Route: 041
     Dates: start: 20090311, end: 20090317
  9. FARMORUBICIN [Suspect]
     Route: 041
     Dates: start: 20090420, end: 20090426

REACTIONS (1)
  - INTERSTITIAL LUNG DISEASE [None]
